FAERS Safety Report 7151605-9 (Version None)
Quarter: 2010Q4

REPORT INFORMATION
  Report Type: 
  Country: None (occurrence: None)
  Receive Date: 20101210
  Receipt Date: 20101207
  Transmission Date: 20110411
  Serious: Yes (Other)
  Sender: FDA-Public Use
  Company Number: CHPA2010US18410

PATIENT
  Age: 83 Year
  Sex: Female

DRUGS (1)
  1. VOLTAREN [Suspect]
     Indication: ROTATOR CUFF SYNDROME
     Dosage: 2 G, BID
     Route: 061
     Dates: start: 20100101

REACTIONS (4)
  - CELLULITIS [None]
  - DRUG ADMINISTERED AT INAPPROPRIATE SITE [None]
  - ERYTHEMA [None]
  - OFF LABEL USE [None]
